FAERS Safety Report 6014650-2 (Version None)
Quarter: 2008Q4

REPORT INFORMATION
  Report Type: 
  Country: None (occurrence: None)
  Receive Date: 20081219
  Receipt Date: 20081015
  Transmission Date: 20090506
  Serious: No
  Sender: FDA-Public Use
  Company Number: A0752012A

PATIENT
  Age: 74 Year
  Sex: Male

DRUGS (10)
  1. AVODART [Suspect]
     Indication: BENIGN PROSTATIC HYPERPLASIA
     Dosage: .5MG PER DAY
     Route: 048
     Dates: start: 20080831
  2. LORAZEPAM [Concomitant]
  3. TERAZOSIN HCL [Concomitant]
  4. SERTRALINE [Concomitant]
  5. ENALAPRIL MALEATE [Concomitant]
  6. GEMFIBROZIL [Concomitant]
  7. PROPOXYPHENE NAPSYLATE AND ACETAMINOPHEN [Concomitant]
  8. FLOMAX [Concomitant]
  9. PHENAZOPYRIDINE HCL TAB [Concomitant]
  10. IBUPROFEN [Concomitant]

REACTIONS (1)
  - BLOOD PRESSURE INCREASED [None]
